FAERS Safety Report 10437099 (Version 2)
Quarter: 2018Q4

REPORT INFORMATION
  Report Type: Spontaneous
  Country: US (occurrence: US)
  Receive Date: 20140908
  Receipt Date: 20181121
  Transmission Date: 20190204
  Serious: No
  Sender: FDA-Public Use
  Company Number: US-PFIZER INC-2014247130

PATIENT
  Age: 46 Year
  Sex: Female

DRUGS (3)
  1. PRISTIQ EXTENDED-RELEASE [Suspect]
     Active Substance: DESVENLAFAXINE SUCCINATE
     Indication: BIPOLAR DISORDER
  2. PRISTIQ EXTENDED-RELEASE [Suspect]
     Active Substance: DESVENLAFAXINE SUCCINATE
     Indication: PANIC ATTACK
     Dosage: 100 MG, 1X/DAY
  3. WELLBUTRIN XL [Concomitant]
     Active Substance: BUPROPION HYDROCHLORIDE
     Indication: DEPRESSION
     Dosage: 300 MG, 1X/DAY

REACTIONS (4)
  - Malaise [Unknown]
  - Emotional disorder [Unknown]
  - Prescription drug used without a prescription [Unknown]
  - Product use in unapproved indication [Unknown]
